FAERS Safety Report 5604371-X (Version None)
Quarter: 2008Q1

REPORT INFORMATION
  Report Type: 
  Country: None (occurrence: None)
  Receive Date: 20080128
  Receipt Date: 20080114
  Transmission Date: 20080703
  Serious: Yes (Other)
  Sender: FDA-Public Use
  Company Number: US-ELI_LILLY_AND_COMPANY-US200801002629

PATIENT
  Sex: Female

DRUGS (3)
  1. EVISTA [Suspect]
     Indication: OSTEOPOROSIS
     Dosage: 60 MG, UNK
     Dates: end: 20050101
  2. FORTEO [Suspect]
     Indication: OSTEOPOROSIS
     Dosage: UNK, UNK
     Dates: start: 20050901, end: 20070901
  3. CALTRATE +D [Concomitant]
     Dosage: UNK, DAILY (1/D)

REACTIONS (8)
  - BONE DENSITY DECREASED [None]
  - CATARACT [None]
  - CORNEAL DEGENERATION [None]
  - DIABETES MELLITUS [None]
  - GLYCOSYLATED HAEMOGLOBIN INCREASED [None]
  - OSTEOPENIA [None]
  - OSTEOPOROSIS [None]
  - STRESS [None]
